FAERS Safety Report 5841136-8 (Version None)
Quarter: 2008Q3

REPORT INFORMATION
  Report Type: 
  Country: None (occurrence: None)
  Receive Date: 20080811
  Receipt Date: 20080811
  Transmission Date: 20090109
  Serious: Yes (Hospitalization)
  Sender: FDA-Public Use
  Company Number: None

PATIENT
  Sex: Male
  Weight: 79.8 kg

DRUGS (1)
  1. TAXOTERE [Suspect]
     Dosage: 149 MG

REACTIONS (5)
  - ABDOMINAL PAIN [None]
  - COLITIS [None]
  - HAEMATOCHEZIA [None]
  - HAEMORRHAGE [None]
  - PAIN [None]
